FAERS Safety Report 26005930 (Version 2)
Quarter: 2025Q4

REPORT INFORMATION
  Report Type: Spontaneous
  Country: JP (occurrence: JP)
  Receive Date: 20251106
  Receipt Date: 20251119
  Transmission Date: 20260118
  Serious: Yes (Other)
  Sender: UCB
  Company Number: JP-UCBJ-CD202514547UCBPHAPROD

PATIENT
  Age: 83 Year

DRUGS (13)
  1. VIMPAT [Suspect]
     Active Substance: LACOSAMIDE
     Indication: Status epilepticus
     Dosage: 50 MILLIGRAM, 2X/DAY (BID)
  2. PREGABALIN [Suspect]
     Active Substance: PREGABALIN
     Indication: Asthma
     Dosage: 25 MILLIGRAM, 2X/DAY (BID)
  3. AMLODIPINE [Concomitant]
     Active Substance: AMLODIPINE BESYLATE
     Indication: Hypertension
  4. CELECOXIB [Concomitant]
     Active Substance: CELECOXIB
     Indication: Osteoarthritis
  5. MONTELUKAST [Concomitant]
     Active Substance: MONTELUKAST
     Indication: Asthma
  6. MAGNESIUM OXIDE [Concomitant]
     Active Substance: MAGNESIUM OXIDE
     Indication: Constipation
     Dosage: 250 MILLIGRAM, 3X/DAY (TID)
  7. DAYVIGO [Concomitant]
     Active Substance: LEMBOREXANT
     Indication: Sleep disorder
  8. TIZANIDINE [Concomitant]
     Active Substance: TIZANIDINE
     Indication: Muscle tightness
     Dosage: 1 MILLIGRAM, 3X/DAY (TID)
  9. VONOPRAZAN FUMARATE [Concomitant]
     Active Substance: VONOPRAZAN FUMARATE
     Indication: Product used for unknown indication
  10. LIMAPROST [Concomitant]
     Active Substance: LIMAPROST
     Indication: Pain
  11. HERBALS [Concomitant]
     Active Substance: HERBALS
     Indication: Product used for unknown indication
     Dosage: 2.5 GRAM, 3X/DAY (TID)
  12. CALONAL [Concomitant]
     Active Substance: ACETAMINOPHEN
  13. BUDEFORU [Concomitant]
     Indication: Asthma

REACTIONS (1)
  - Urticaria [Recovered/Resolved]
